FAERS Safety Report 6017516-7 (Version None)
Quarter: 2008Q4

REPORT INFORMATION
  Report Type: 
  Country: None (occurrence: None)
  Receive Date: 20081223
  Receipt Date: 20081215
  Transmission Date: 20090506
  Serious: Yes (Hospitalization, Other)
  Sender: FDA-Public Use
  Company Number: PHHO2008US14871

PATIENT
  Sex: Female
  Weight: 49.2 kg

DRUGS (12)
  1. DIOVAN HCT [Suspect]
     Indication: HYPERTENSION
     Dosage: UNK
     Dates: end: 20081028
  2. PARAPLATIN [Suspect]
  3. TAXOL [Suspect]
  4. NEULASTA [Concomitant]
  5. POTASSIUM CHLORIDE [Concomitant]
  6. NORVASC [Concomitant]
  7. GLUCOSAMINE [Concomitant]
  8. VITAMIN D [Concomitant]
  9. DECADRON [Concomitant]
  10. VICODIN [Concomitant]
  11. ATIVAN [Concomitant]
  12. TEMAZEPAM [Concomitant]

REACTIONS (7)
  - ADVERSE DRUG REACTION [None]
  - DEHYDRATION [None]
  - DYSPHAGIA [None]
  - HYPONATRAEMIA [None]
  - MUCOSAL INFLAMMATION [None]
  - OROPHARYNGEAL PAIN [None]
  - URINARY TRACT INFECTION [None]
